FAERS Safety Report 7442395-0 (Version None)
Quarter: 2011Q2

REPORT INFORMATION
  Report Type: 
  Country: None (occurrence: None)
  Receive Date: 20110428
  Receipt Date: 20110426
  Transmission Date: 20111010
  Serious: Yes (Hospitalization, Other)
  Sender: FDA-Public Use
  Company Number: BR-ROCHE-682496

PATIENT
  Sex: Female
  Weight: 53.6 kg

DRUGS (8)
  1. PRESSAT [Concomitant]
     Indication: HYPERTENSION
  2. PURAN T4 [Concomitant]
     Indication: THYROID DISORDER
  3. LOSARTAN POTASSIUM [Concomitant]
     Indication: HYPERTENSION
  4. ATENOLOL [Concomitant]
     Indication: HYPERTENSION
  5. CALCIUM [Concomitant]
     Indication: OSTEOPOROSIS
  6. RIVOTRIL [Concomitant]
     Indication: SLEEP DISORDER THERAPY
  7. TOCILIZUMAB [Suspect]
     Indication: RHEUMATOID ARTHRITIS
     Dosage: DOSE: 200 MG/ 10 ML, FORM: INFUSION
     Route: 042
     Dates: start: 20091029
  8. ALENDRONATE SODIUM [Concomitant]

REACTIONS (2)
  - BONE PAIN [None]
  - HYPERTENSIVE CRISIS [None]
